FAERS Safety Report 9023895 (Version 1)
Quarter: 2013Q1

REPORT INFORMATION
  Report Type: Spontaneous
  Country: IT (occurrence: IT)
  Receive Date: 20130121
  Receipt Date: 20130121
  Transmission Date: 20140127
  Serious: Yes (Hospitalization)
  Sender: FDA-Public Use
  Company Number: IT-NOVOPROD-368621

PATIENT
  Age: 85 Year
  Sex: Female

DRUGS (5)
  1. ACTRAPID [Suspect]
     Indication: DIABETES MELLITUS
     Dosage: UNK
     Route: 065
     Dates: start: 20101211
  2. LANTUS [Suspect]
     Indication: DIABETES MELLITUS
     Dosage: UNK
     Route: 065
  3. RAMIPRIL [Concomitant]
     Dosage: 2.5 MG, QD
     Route: 065
  4. DEURSIL [Concomitant]
  5. CARDIO ASPIRIN [Concomitant]

REACTIONS (1)
  - Syncope [Recovered/Resolved]
